FAERS Safety Report 6159235-2 (Version None)
Quarter: 2009Q2

REPORT INFORMATION
  Report Type: 
  Country: None (occurrence: None)
  Receive Date: 20090417
  Receipt Date: 20090406
  Transmission Date: 20091009
  Serious: Yes (Other)
  Sender: FDA-Public Use
  Company Number: US-PFIZER INC-2009184019

PATIENT
  Sex: Female
  Weight: 61.224 kg

DRUGS (8)
  1. LYRICA [Suspect]
     Indication: NEURALGIA
     Dosage: UNK
     Dates: start: 20080601, end: 20080601
  2. LYRICA [Suspect]
     Indication: FIBROMYALGIA
  3. PREMARIN [Concomitant]
  4. DOXEPIN [Concomitant]
  5. ALBUTEROL [Concomitant]
  6. WELLBUTRIN [Concomitant]
  7. TOPROL-XL [Concomitant]
  8. AMBIEN [Concomitant]

REACTIONS (14)
  - ASTHENOPIA [None]
  - ASTIGMATISM [None]
  - DIPLOPIA [None]
  - EYE PAIN [None]
  - HEADACHE [None]
  - HYPERMETROPIA [None]
  - MYOPIA [None]
  - OPTIC NEURITIS [None]
  - PHOTOPHOBIA [None]
  - PRESBYOPIA [None]
  - VISION BLURRED [None]
  - VISUAL ACUITY REDUCED [None]
  - VISUAL FIELD DEFECT [None]
  - VISUAL IMPAIRMENT [None]
